FAERS Safety Report 6793141-5 (Version None)
Quarter: 2010Q2

REPORT INFORMATION
  Report Type: 
  Country: None (occurrence: None)
  Receive Date: 20100624
  Receipt Date: 20090609
  Transmission Date: 20101027
  Serious: Yes (Other)
  Sender: FDA-Public Use
  Company Number: US-MYLANLABS-2009S1009792

PATIENT
  Age: 38 Year
  Sex: Male

DRUGS (7)
  1. CLOZAPINE [Suspect]
     Route: 048
     Dates: start: 20071122, end: 20090605
  2. CLOZAPINE [Suspect]
     Route: 048
     Dates: start: 20071122, end: 20090605
  3. CLOZAPINE [Suspect]
     Route: 048
     Dates: start: 20071122, end: 20090605
  4. CLOZAPINE [Suspect]
     Route: 048
     Dates: start: 20071122, end: 20090605
  5. HALDOL [Concomitant]
  6. HALDOL [Concomitant]
  7. COGENTIN [Concomitant]

REACTIONS (2)
  - GRANULOCYTOPENIA [None]
  - LEUKOPENIA [None]
